FAERS Safety Report 12551502 (Version 1)
Quarter: 2016Q3

REPORT INFORMATION
  Report Type: Spontaneous
  Country: US (occurrence: US)
  Receive Date: 20160713
  Receipt Date: 20160713
  Transmission Date: 20161109
  Serious: Yes (Other)
  Sender: FDA-Public Use
  Company Number: US-BAUSCH-BL-2016-015529

PATIENT
  Age: 76 Year
  Sex: Male
  Weight: 83.99 kg

DRUGS (13)
  1. COMBIGAN [Concomitant]
     Active Substance: BRIMONIDINE TARTRATE\TIMOLOL MALEATE
     Indication: INTRAOCULAR PRESSURE TEST ABNORMAL
     Route: 047
     Dates: start: 20160524, end: 20160607
  2. DUREZOL [Concomitant]
     Active Substance: DIFLUPREDNATE
     Indication: INFLAMMATION
     Route: 047
     Dates: start: 20160524, end: 20160628
  3. LOTEMAX [Concomitant]
     Active Substance: LOTEPREDNOL ETABONATE
     Indication: SWELLING
     Route: 047
     Dates: start: 20160628
  4. PROLENSA [Suspect]
     Active Substance: BROMFENAC SODIUM
     Indication: SWELLING
     Route: 047
     Dates: start: 20160521, end: 20160626
  5. PROLENSA [Suspect]
     Active Substance: BROMFENAC SODIUM
     Indication: INFLAMMATION
  6. TIMOLOL. [Concomitant]
     Active Substance: TIMOLOL
     Indication: INTRAOCULAR PRESSURE TEST ABNORMAL
     Route: 047
     Dates: start: 2013
  7. DUREZOL [Concomitant]
     Active Substance: DIFLUPREDNATE
     Indication: PAIN
  8. GATIFLOXACIN. [Concomitant]
     Active Substance: GATIFLOXACIN
     Indication: INFECTION
     Route: 047
     Dates: start: 20160521
  9. LOSARTAN AND HYDROCHLOROTHIAZIDE [Concomitant]
     Active Substance: HYDROCHLOROTHIAZIDE\LOSARTAN POTASSIUM
     Indication: BLOOD PRESSURE ABNORMAL
     Dosage: 100/25
     Route: 048
     Dates: start: 2015
  10. SIMVASTATIN. [Concomitant]
     Active Substance: SIMVASTATIN
     Indication: BLOOD CHOLESTEROL ABNORMAL
     Route: 048
     Dates: start: 2015
  11. TORSEMIDE. [Concomitant]
     Active Substance: TORSEMIDE
     Indication: DIURETIC THERAPY
     Route: 048
     Dates: start: 2015
  12. LOTEMAX [Concomitant]
     Active Substance: LOTEPREDNOL ETABONATE
     Indication: INFLAMMATION
  13. VITAMIN D3 [Concomitant]
     Active Substance: CHOLECALCIFEROL
     Indication: PRODUCT USED FOR UNKNOWN INDICATION
     Route: 048
     Dates: start: 2014

REACTIONS (3)
  - Intraocular pressure increased [Unknown]
  - Condition aggravated [Not Recovered/Not Resolved]
  - Eye pain [Not Recovered/Not Resolved]

NARRATIVE: CASE EVENT DATE: 20160523
